FAERS Safety Report 6438831-9 (Version None)
Quarter: 2009Q4

REPORT INFORMATION
  Report Type: 
  Country: None (occurrence: None)
  Receive Date: 20091110
  Receipt Date: 20091029
  Transmission Date: 20100525
  Serious: Yes (Hospitalization)
  Sender: FDA-Public Use
  Company Number: TRP_06554_2009

PATIENT
  Sex: Male

DRUGS (2)
  1. INFERGEN [Suspect]
     Indication: DRUG USE FOR UNKNOWN INDICATION
     Dosage: DF
  2. LANTUS [Suspect]
     Indication: DRUG USE FOR UNKNOWN INDICATION
     Dosage: DF

REACTIONS (1)
  - WRONG TECHNIQUE IN DRUG USAGE PROCESS [None]
